FAERS Safety Report 4814017-6 (Version None)
Quarter: 2005Q4

REPORT INFORMATION
  Report Type: 
  Country: None (occurrence: None)
  Receive Date: 20051028
  Receipt Date: 20050308
  Transmission Date: 20060501
  Serious: No
  Sender: FDA-Public Use
  Company Number: US-GLAXOSMITHKLINE-A0548833A

PATIENT
  Age: 77 Year
  Sex: Male

DRUGS (9)
  1. SEREVENT [Suspect]
     Indication: BRONCHITIS
     Dosage: 1PUFF TWICE PER DAY
     Route: 055
     Dates: start: 20050301
  2. INSULIN [Concomitant]
  3. GLIPIZIDE [Concomitant]
  4. TRICOR [Concomitant]
  5. ATENOLOL [Concomitant]
  6. CAPTOPRIL [Concomitant]
  7. FUROSEMIDE [Concomitant]
  8. NIASPAN [Concomitant]
  9. TRAZODONE HCL [Concomitant]

REACTIONS (2)
  - COUGH [None]
  - DRUG INEFFECTIVE [None]
